FAERS Safety Report 11468658 (Version 2)
Quarter: 2015Q4

REPORT INFORMATION
  Report Type: Spontaneous
  Country: US (occurrence: US)
  Receive Date: 20150908
  Receipt Date: 20151109
  Transmission Date: 20160304
  Serious: Yes (Other)
  Sender: FDA-Public Use
  Company Number: US-ENDO PHARMACEUTICALS INC.-2015-002687

PATIENT
  Age: 58 Year
  Sex: Male
  Weight: 83.99 kg

DRUGS (1)
  1. XIAFLEX [Suspect]
     Active Substance: COLLAGENASE CLOSTRIDIUM HISTOLYTICUM
     Indication: PEYRONIE^S DISEASE
     Route: 026
     Dates: start: 201504, end: 201504

REACTIONS (19)
  - Condition aggravated [Not Recovered/Not Resolved]
  - Penile blister [Not Recovered/Not Resolved]
  - Injection site discolouration [None]
  - Penile exfoliation [Not Recovered/Not Resolved]
  - Injection site bruising [None]
  - Injection site haematoma [None]
  - Penile contusion [Recovered/Resolved]
  - Abasia [None]
  - Peyronie^s disease [Not Recovered/Not Resolved]
  - Injection site swelling [None]
  - Injection site discomfort [None]
  - Product quality issue [None]
  - Penile swelling [Not Recovered/Not Resolved]
  - Scrotal swelling [Not Recovered/Not Resolved]
  - Injection site pain [None]
  - Injection site vesicles [None]
  - Penile pain [Not Recovered/Not Resolved]
  - Injection site exfoliation [None]
  - Penile burning sensation [Not Recovered/Not Resolved]

NARRATIVE: CASE EVENT DATE: 201504
